FAERS Safety Report 11939664 (Version 1)
Quarter: 2016Q1

REPORT INFORMATION
  Report Type: Spontaneous
  Country: US (occurrence: US)
  Receive Date: 20160122
  Receipt Date: 20160122
  Transmission Date: 20160526
  Serious: No
  Sender: FDA-Public Use
  Company Number: US-TEVA-625600USA

PATIENT
  Age: 45 Year
  Sex: Male

DRUGS (4)
  1. XANAX [Concomitant]
     Active Substance: ALPRAZOLAM
  2. OXYCODONE [Concomitant]
     Active Substance: OXYCODONE
  3. COPAXONE [Suspect]
     Active Substance: GLATIRAMER ACETATE
     Indication: MULTIPLE SCLEROSIS
     Route: 058
     Dates: start: 20150313
  4. A/B OTIC [Concomitant]

REACTIONS (11)
  - Vision blurred [Unknown]
  - Drug dose omission [Unknown]
  - Headache [Unknown]
  - Hypoaesthesia [Unknown]
  - Tinnitus [Unknown]
  - Fall [Unknown]
  - Blood pressure increased [Unknown]
  - Migraine [Unknown]
  - Back pain [Unknown]
  - Acidosis [Unknown]
  - Muscle spasms [Unknown]

NARRATIVE: CASE EVENT DATE: 201601
